FAERS Safety Report 9618638 (Version 2)
Quarter: 2013Q4

REPORT INFORMATION
  Report Type: Spontaneous
  Country: US (occurrence: US)
  Receive Date: 20131014
  Receipt Date: 20131030
  Transmission Date: 20140711
  Serious: No
  Sender: FDA-Public Use
  Company Number: US-PFIZER INC-2013293895

PATIENT
  Age: 52 Year
  Sex: Female
  Weight: 63 kg

DRUGS (2)
  1. PRISTIQ [Suspect]
     Indication: DEPRESSION
     Dosage: 50 MG, DAILY
     Dates: start: 201104, end: 20131009
  2. ESTRADIOL [Concomitant]
     Indication: MENOPAUSE
     Dosage: UNK

REACTIONS (1)
  - Drug withdrawal syndrome [Not Recovered/Not Resolved]
